FAERS Safety Report 16308946 (Version 3)
Quarter: 2019Q2

REPORT INFORMATION
  Report Type: Spontaneous
  Country: US (occurrence: US)
  Receive Date: 20190514
  Receipt Date: 20190621
  Transmission Date: 20190711
  Serious: No
  Sender: FDA-Public Use
  Company Number: US-PFIZER INC-2019138087

PATIENT
  Age: 56 Year
  Sex: Female

DRUGS (8)
  1. GABAPENTIN. [Concomitant]
     Active Substance: GABAPENTIN
     Dosage: 800 MG, 4X/DAY
     Route: 048
  2. CYMBALTA [Concomitant]
     Active Substance: DULOXETINE HYDROCHLORIDE
     Dosage: 30 MG, 2X/DAY
     Route: 048
  3. LYRICA [Suspect]
     Active Substance: PREGABALIN
     Dosage: UNK, [TAKING LYRICA 6 TIMES A DAY]
  4. NORCO [Concomitant]
     Active Substance: ACETAMINOPHEN\HYDROCODONE BITARTRATE
     Dosage: UNK, AS NEEDED [TWICE DAILY AS NEEDED # 60]
     Route: 048
  5. LYRICA [Suspect]
     Active Substance: PREGABALIN
     Dosage: UNK (UPPED DOSE BY 1 PILL)
  6. BACLOFEN. [Concomitant]
     Active Substance: BACLOFEN
     Dosage: 10 MG, AS NEEDED [TID (THREE TIMES A DAY) PRN]
     Route: 048
  7. LYRICA [Suspect]
     Active Substance: PREGABALIN
     Indication: BACK PAIN
     Dosage: 75 MG, 3X/DAY
     Route: 048
  8. LYRICA [Suspect]
     Active Substance: PREGABALIN
     Dosage: UNK, [TAKING THE FIVE TIMES A DAY]

REACTIONS (3)
  - Emotional distress [Unknown]
  - Nervousness [Unknown]
  - Off label use [Unknown]
